FAERS Safety Report 9440947 (Version 1)
Quarter: 2013Q3

REPORT INFORMATION
  Report Type: Spontaneous
  Country: US (occurrence: None)
  Receive Date: 20130801
  Receipt Date: 20130801
  Transmission Date: 20140515
  Serious: Yes (Life-Threatening, Hospitalization)
  Sender: FDA-Public Use
  Company Number: AXC-2013-000357

PATIENT
  Age: 65 Year
  Sex: Male

DRUGS (2)
  1. POTASSIUM CHLORIDE [Suspect]
     Indication: PRODUCT USED FOR UNKNOWN INDICATION
     Dosage: 60 MEG, QD, UNKNOWN
  2. POTASSIUM [Suspect]
     Indication: MEDICAL DIET
     Dosage: ABOUT 8 TSP DAILY ON MEALS AND SELTZER WATER,

REACTIONS (5)
  - Hyperkalaemia [None]
  - Bradycardia [None]
  - Hypotension [None]
  - Depressed level of consciousness [None]
  - Acute respiratory failure [None]
